FAERS Safety Report 18062177 (Version 2)
Quarter: 2020Q3

REPORT INFORMATION
  Report Type: Report from Study
  Country: None (occurrence: TW)
  Receive Date: 20200723
  Receipt Date: 20200730
  Transmission Date: 20201103
  Serious: Yes (Hospitalization)
  Sender: FDA-Public Use
  Company Number: TW-ABBVIE-20P-153-3480512-00

PATIENT
  Age: 53 Year
  Sex: Male

DRUGS (61)
  1. VENETOCLAX. [Suspect]
     Active Substance: VENETOCLAX
     Route: 048
     Dates: start: 20191008, end: 20200304
  2. VENETOCLAX. [Suspect]
     Active Substance: VENETOCLAX
     Route: 048
     Dates: start: 20200722
  3. DEPYRETIN [Concomitant]
     Active Substance: ACETAMINOPHEN
     Indication: UPPER RESPIRATORY TRACT INFECTION
     Route: 048
     Dates: start: 20190411, end: 20190416
  4. LOPERAM [Concomitant]
     Route: 048
     Dates: start: 20180919, end: 20180926
  5. ALLOPURINOL. [Concomitant]
     Active Substance: ALLOPURINOL
     Route: 048
     Dates: start: 20171209, end: 20171212
  6. ALLOPURINOL. [Concomitant]
     Active Substance: ALLOPURINOL
     Route: 048
     Dates: start: 20171223
  7. TONSARIC [Concomitant]
     Indication: HYPERURICAEMIA
     Route: 048
     Dates: start: 20190314
  8. VENETOCLAX. [Suspect]
     Active Substance: VENETOCLAX
     Route: 048
     Dates: start: 20171213, end: 20171219
  9. VENETOCLAX. [Suspect]
     Active Substance: VENETOCLAX
     Route: 048
     Dates: start: 20190820, end: 20190820
  10. DEPYRETIN [Concomitant]
     Active Substance: ACETAMINOPHEN
     Indication: INFLUENZA LIKE ILLNESS
     Route: 048
     Dates: start: 20171123, end: 20171130
  11. DEPYRETIN [Concomitant]
     Active Substance: ACETAMINOPHEN
     Indication: PREMEDICATION
     Route: 048
     Dates: start: 20190509, end: 20190514
  12. BACIDE [Concomitant]
     Indication: INFECTION PROPHYLAXIS
     Route: 048
     Dates: start: 20171002, end: 20171227
  13. NINCORT [Concomitant]
     Dosage: 1 APPLICATION
     Route: 061
     Dates: start: 20180307, end: 20180324
  14. IMOVANE [Concomitant]
     Active Substance: ZOPICLONE
     Dosage: QD, PRN
     Route: 048
     Dates: start: 20180501
  15. TONSARIC [Concomitant]
     Indication: PROPHYLAXIS
  16. VENETOCLAX. [Suspect]
     Active Substance: VENETOCLAX
     Indication: CHRONIC LYMPHOCYTIC LEUKAEMIA
     Route: 048
     Dates: start: 20171122, end: 20171128
  17. VENETOCLAX. [Suspect]
     Active Substance: VENETOCLAX
     Route: 048
     Dates: start: 20190926, end: 20191007
  18. DEPYRETIN [Concomitant]
     Active Substance: ACETAMINOPHEN
     Route: 048
     Dates: start: 20191231, end: 20200105
  19. NINCORT [Concomitant]
     Dosage: 1 APPLICATION
     Route: 061
     Dates: start: 20180403, end: 20180410
  20. LOPERAM [Concomitant]
     Route: 048
     Dates: start: 20190314, end: 20190321
  21. LOPERAM [Concomitant]
     Route: 048
     Dates: start: 20190509, end: 20190519
  22. LOPERAM [Concomitant]
     Route: 048
     Dates: start: 20190606, end: 20190616
  23. MABTHERA [Concomitant]
     Active Substance: RITUXIMAB
     Indication: AUTOIMMUNE HAEMOLYTIC ANAEMIA
     Dosage: Q3W, Q4W
     Route: 042
     Dates: start: 20190902
  24. FOLIC ACID. [Concomitant]
     Active Substance: FOLIC ACID
     Indication: NUTRITIONAL SUPPLEMENTATION
     Route: 048
     Dates: start: 20190801
  25. ALLOPURINOL. [Concomitant]
     Active Substance: ALLOPURINOL
     Route: 048
     Dates: start: 20171202, end: 20171205
  26. ALLOPURINOL. [Concomitant]
     Active Substance: ALLOPURINOL
     Route: 048
     Dates: start: 20171213, end: 20171215
  27. ALLOPURINOL. [Concomitant]
     Active Substance: ALLOPURINOL
     Route: 048
     Dates: start: 20171220, end: 20171222
  28. SOD CHLORIDE [Concomitant]
     Active Substance: SODIUM CHLORIDE
     Indication: AUTOIMMUNE HAEMOLYTIC ANAEMIA
     Route: 042
     Dates: start: 20190819
  29. VENETOCLAX. [Suspect]
     Active Substance: VENETOCLAX
     Route: 048
     Dates: start: 20200611, end: 20200711
  30. BACIDE [Concomitant]
     Route: 048
     Dates: start: 20180501
  31. LOPERAM [Concomitant]
     Route: 048
     Dates: start: 20190411, end: 20190421
  32. ALLOPURINOL. [Concomitant]
     Active Substance: ALLOPURINOL
     Route: 048
     Dates: start: 20171206, end: 20171208
  33. VENETOCLAX. [Suspect]
     Active Substance: VENETOCLAX
     Route: 048
     Dates: start: 20200319, end: 20200610
  34. LOPERAM [Concomitant]
     Route: 048
     Dates: start: 20190214, end: 20190221
  35. IMOVANE [Concomitant]
     Active Substance: ZOPICLONE
     Indication: INSOMNIA
     Route: 048
     Dates: start: 20180207, end: 20180227
  36. VENETOCLAX. [Suspect]
     Active Substance: VENETOCLAX
     Route: 048
     Dates: start: 20171220, end: 20190817
  37. DEPYRETIN [Concomitant]
     Active Substance: ACETAMINOPHEN
     Indication: MONOCLONAL ANTIBODY CHEMOIMMUNOCONJUGATE THERAPY
     Route: 048
     Dates: start: 20181217, end: 20181222
  38. NINCORT [Concomitant]
     Indication: MUCOSAL INFLAMMATION
     Dosage: 1 APPLICATION
     Route: 048
     Dates: start: 20170728, end: 20171223
  39. NINCORT [Concomitant]
     Indication: STOMATITIS
     Route: 061
     Dates: start: 20171130, end: 20171223
  40. NINCORT [Concomitant]
     Dosage: 1 APPLICATION
     Route: 061
     Dates: start: 20181017
  41. DEXAMETHASONE. [Concomitant]
     Active Substance: DEXAMETHASONE
     Indication: AUTOIMMUNE HAEMOLYTIC ANAEMIA
     Route: 042
     Dates: start: 20190822, end: 20190826
  42. DEXAMETHASONE. [Concomitant]
     Active Substance: DEXAMETHASONE
     Route: 048
     Dates: start: 20190826
  43. ALLOPURINOL. [Concomitant]
     Active Substance: ALLOPURINOL
     Indication: HYPERURICAEMIA
     Route: 048
     Dates: start: 20170925, end: 20171120
  44. ALLOPURINOL. [Concomitant]
     Active Substance: ALLOPURINOL
     Route: 048
     Dates: start: 20171129, end: 20171201
  45. VENETOCLAX. [Suspect]
     Active Substance: VENETOCLAX
     Route: 048
     Dates: start: 20171206, end: 20171212
  46. BARACLUDE [Concomitant]
     Active Substance: ENTECAVIR
     Indication: ANTIVIRAL PROPHYLAXIS
     Route: 048
     Dates: start: 20170316
  47. DIOCTAHEDRAL SMECTITE [Concomitant]
     Active Substance: MONTMORILLONITE
     Indication: DIARRHOEA
     Route: 048
     Dates: start: 20190821
  48. FOLIC ACID. [Concomitant]
     Active Substance: FOLIC ACID
     Indication: AUTOIMMUNE HAEMOLYTIC ANAEMIA
     Route: 048
     Dates: start: 20190825
  49. ALLOPURINOL. [Concomitant]
     Active Substance: ALLOPURINOL
     Indication: PROPHYLAXIS
     Route: 048
     Dates: start: 20171121, end: 20171123
  50. ALLOPURINOL. [Concomitant]
     Active Substance: ALLOPURINOL
     Route: 048
     Dates: start: 20171216, end: 20171219
  51. NORMAL SALINE SOLUTION [Concomitant]
     Active Substance: SODIUM CHLORIDE
     Indication: PROPHYLAXIS
     Route: 042
     Dates: start: 20171121, end: 20171123
  52. VENETOCLAX. [Suspect]
     Active Substance: VENETOCLAX
     Route: 048
     Dates: start: 20171129, end: 20171205
  53. VENETOCLAX. [Suspect]
     Active Substance: VENETOCLAX
     Route: 048
     Dates: start: 20190828, end: 20190925
  54. DEPYRETIN [Concomitant]
     Active Substance: ACETAMINOPHEN
     Dosage: STAT
     Route: 048
     Dates: start: 20190902
  55. LOPERAM [Concomitant]
     Indication: DIARRHOEA
     Route: 048
     Dates: start: 20171213, end: 20171220
  56. LOPERAM [Concomitant]
     Indication: PROPHYLAXIS AGAINST DIARRHOEA
     Route: 048
     Dates: start: 20180123, end: 20180221
  57. LOPERAM [Concomitant]
     Dosage: BID, PRN
     Route: 048
     Dates: start: 20181017
  58. LOPERAM [Concomitant]
     Route: 048
     Dates: start: 20180123, end: 20180207
  59. LOPERAM [Concomitant]
     Route: 048
     Dates: start: 20190704, end: 20190714
  60. LOPERAM [Concomitant]
     Route: 048
     Dates: start: 20190801, end: 20190811
  61. ALLOPURINOL. [Concomitant]
     Active Substance: ALLOPURINOL
     Route: 048
     Dates: start: 20171124, end: 20190226

REACTIONS (1)
  - Pneumonia [Not Recovered/Not Resolved]

NARRATIVE: CASE EVENT DATE: 20200712
